FAERS Safety Report 22010696 (Version 1)
Quarter: 2023Q1

REPORT INFORMATION
  Report Type: Spontaneous
  Country: US (occurrence: US)
  Receive Date: 20230220
  Receipt Date: 20230220
  Transmission Date: 20230418
  Serious: Yes (Hospitalization)
  Sender: FDA-Public Use
  Company Number: US-MYLANLABS-2023M1017085

PATIENT
  Age: 46 Year
  Sex: Male

DRUGS (1)
  1. HEPARIN [Suspect]
     Active Substance: HEPARIN SODIUM
     Indication: Thrombosis prophylaxis
     Dosage: UNK, TID (5000 UNITS 3 TIMES A DAY)
     Route: 065

REACTIONS (1)
  - Drug ineffective [Unknown]
